FAERS Safety Report 8102511-4 (Version None)
Quarter: 2012Q1

REPORT INFORMATION
  Report Type: 
  Country: None (occurrence: None)
  Receive Date: 20120126
  Receipt Date: 20120120
  Transmission Date: 20120608
  Serious: Yes (Death, Other)
  Sender: FDA-Public Use
  Company Number: 2010US004741

PATIENT
  Age: 59 Year
  Sex: Male

DRUGS (6)
  1. TOPROL-XL [Concomitant]
  2. LACTULOSE [Concomitant]
  3. PROGRAF [Suspect]
     Indication: LIVER TRANSPLANT
     Dosage: 1 MG, BID, ORAL
     Route: 048
     Dates: start: 19990913
  4. POTASSIUM CHLORIDE [Concomitant]
  5. MS CONTIN [Concomitant]
  6. CARDURA [Concomitant]

REACTIONS (8)
  - HEPATIC CIRRHOSIS [None]
  - SOMNOLENCE [None]
  - MALAISE [None]
  - AMMONIA INCREASED [None]
  - CONFUSIONAL STATE [None]
  - ASPARTATE AMINOTRANSFERASE INCREASED [None]
  - ALANINE AMINOTRANSFERASE INCREASED [None]
  - GAMMA-GLUTAMYLTRANSFERASE INCREASED [None]
